APPROVED DRUG PRODUCT: METHYLERGONOVINE MALEATE
Active Ingredient: METHYLERGONOVINE MALEATE
Strength: 0.2MG
Dosage Form/Route: TABLET;ORAL
Application: A211919 | Product #001 | TE Code: AB
Applicant: RISING PHARMA HOLDINGS INC
Approved: Jan 15, 2021 | RLD: No | RS: No | Type: RX